FAERS Safety Report 4691514-8 (Version None)
Quarter: 2005Q2

REPORT INFORMATION
  Report Type: 
  Country: None (occurrence: None)
  Receive Date: 20050608
  Receipt Date: 20040804
  Transmission Date: 20051028
  Serious: No
  Sender: FDA-Public Use
  Company Number: 376795

PATIENT
  Age: 14 Year
  Sex: Male

DRUGS (1)
  1. ACCUTANE [Suspect]
     Dosage: 60 MG DAILY ORAL
     Route: 048
     Dates: start: 20040505, end: 20040820

REACTIONS (1)
  - PARONYCHIA [None]
